FAERS Safety Report 9536097 (Version 1)
Quarter: 2013Q2

REPORT INFORMATION
  Report Type: Spontaneous
  Country: US (occurrence: None)
  Receive Date: 20130419
  Receipt Date: 20130419
  Transmission Date: 20140414
  Serious: Yes (Hospitalization)
  Sender: FDA-Public Use
  Company Number: USA/USA/13/0027511

PATIENT
  Age: 57 Year
  Sex: Male

DRUGS (3)
  1. SILVER SULFADIAZINE [Suspect]
     Indication: RADIOTHERAPY
     Dosage: AS REQUIRED
     Route: 061
     Dates: start: 20130109, end: 20130116
  2. HYDROCODONE/APAP (-VICODIN) [Concomitant]
  3. IBUPROFEN (IBUPROFEN) [Concomitant]

REACTIONS (1)
  - Hypersensitivity [None]
